FAERS Safety Report 9891440 (Version 4)
Quarter: 2016Q1

REPORT INFORMATION
  Report Type: Spontaneous
  Country: US (occurrence: US)
  Receive Date: 20140212
  Receipt Date: 20160108
  Transmission Date: 20160526
  Serious: No
  Sender: FDA-Public Use
  Company Number: US-PFIZER INC-2014038400

PATIENT
  Age: 69 Year
  Sex: Female

DRUGS (3)
  1. ZESTRIL [Suspect]
     Active Substance: LISINOPRIL
     Dosage: UNK
  2. AVAPRO [Suspect]
     Active Substance: IRBESARTAN
     Dosage: UNK
  3. TRAMADOL. [Suspect]
     Active Substance: TRAMADOL
     Dosage: UNK

REACTIONS (1)
  - Drug hypersensitivity [Not Recovered/Not Resolved]

NARRATIVE: CASE EVENT DATE: 20120320
